FAERS Safety Report 9148032 (Version 2)
Quarter: 2013Q1

REPORT INFORMATION
  Report Type: Spontaneous
  Country: JP (occurrence: JP)
  Receive Date: 20130308
  Receipt Date: 20130325
  Transmission Date: 20140127
  Serious: Yes (Life-Threatening, Hospitalization, Disabling)
  Sender: FDA-Public Use
  Company Number: JP-009507513-1303JPN002892

PATIENT
  Age: 68 Year
  Sex: Female
  Weight: 58 kg

DRUGS (9)
  1. REBETOL [Suspect]
     Indication: HEPATITIS C
     Dosage: 200 MG, BID
     Route: 048
     Dates: start: 20120501, end: 20121016
  2. PEGINTRON [Suspect]
     Indication: HEPATITIS C
     Dosage: 80 MICROGRAM, QW
     Route: 058
     Dates: start: 20120501, end: 20120509
  3. PEGINTRON [Suspect]
     Dosage: 40 MICROGRAM, QW
     Route: 058
     Dates: start: 20120516, end: 20120516
  4. PEGINTRON [Suspect]
     Dosage: 60 MICROGRAM, QW
     Route: 058
     Dates: start: 20120523, end: 20120523
  5. PEGINTRON [Suspect]
     Dosage: 80 MICROGRAM, QW
     Route: 058
     Dates: start: 20120530, end: 20120613
  6. PEGINTRON [Suspect]
     Dosage: 40 MICROGRAM, UNK
     Route: 058
     Dates: start: 20120620, end: 20120620
  7. PEGINTRON [Suspect]
     Dosage: 60 MICROGRAM, QW
     Route: 058
     Dates: start: 20120627, end: 20120711
  8. PEGINTRON [Suspect]
     Dosage: 80 MICROGRAM, QW
     Route: 058
     Dates: start: 20120718, end: 20121010
  9. TELAVIC [Concomitant]
     Indication: HEPATITIS C
     Dosage: 500 MG, TID
     Route: 048
     Dates: start: 20120501, end: 20120724

REACTIONS (3)
  - Type 1 diabetes mellitus [Recovering/Resolving]
  - Autoimmune thyroiditis [Recovering/Resolving]
  - Dyslipidaemia [Recovering/Resolving]
